FAERS Safety Report 6681114-2 (Version None)
Quarter: 2010Q2

REPORT INFORMATION
  Report Type: 
  Country: None (occurrence: None)
  Receive Date: 20100413
  Receipt Date: 20100413
  Transmission Date: 20101027
  Serious: Yes (Hospitalization)
  Sender: FDA-Public Use
  Company Number: None

PATIENT
  Age: 82 Year
  Sex: Male
  Weight: 65 kg

DRUGS (2)
  1. DILTIAZEM HCL [Suspect]
     Indication: ATRIAL FIBRILLATION
     Dosage: 120 MG EVERY DAY PO
     Route: 048
     Dates: start: 20021018, end: 20100407
  2. DIGOXIN [Suspect]
     Dosage: 0.125 MG EVERY DAY PO
     Route: 048
     Dates: start: 19971216

REACTIONS (3)
  - PULMONARY EMBOLISM [None]
  - SINUS ARREST [None]
  - TACHYCARDIA [None]
